FAERS Safety Report 6640618-9 (Version None)
Quarter: 2010Q1

REPORT INFORMATION
  Report Type: 
  Country: None (occurrence: None)
  Receive Date: 20100318
  Receipt Date: 20100311
  Transmission Date: 20100710
  Serious: Yes (Hospitalization, Other)
  Sender: FDA-Public Use
  Company Number: BR-BAYER-201012272LA

PATIENT
  Age: 0 Hour
  Sex: Male
  Weight: 3.3 kg

DRUGS (1)
  1. MIRANOVA [Suspect]
     Indication: ORAL CONTRACEPTION
     Route: 064
     Dates: start: 20081201, end: 20090318

REACTIONS (2)
  - DYSPNOEA [None]
  - PREMATURE BABY [None]
